FAERS Safety Report 10402064 (Version 1)
Quarter: 2014Q3

REPORT INFORMATION
  Report Type: Spontaneous
  Country: FR (occurrence: FR)
  Receive Date: 20140822
  Receipt Date: 20140822
  Transmission Date: 20150326
  Serious: Yes (Hospitalization)
  Sender: FDA-Public Use
  Company Number: FR-ELI_LILLY_AND_COMPANY-FR201408003545

PATIENT
  Age: 67 Year
  Sex: Female

DRUGS (6)
  1. GEMZAR [Suspect]
     Active Substance: GEMCITABINE HYDROCHLORIDE
     Dosage: 1200 MG, WEEKLY (1/W)
     Route: 042
     Dates: start: 20140206
  2. GEMZAR [Suspect]
     Active Substance: GEMCITABINE HYDROCHLORIDE
     Dosage: 1500 MG, WEEKLY (1/W)
     Route: 042
     Dates: start: 20140109
  3. GEMZAR [Suspect]
     Active Substance: GEMCITABINE HYDROCHLORIDE
     Dosage: 1320 MG, WEEKLY (1/W)
     Route: 042
     Dates: start: 20140214
  4. GEMZAR [Suspect]
     Active Substance: GEMCITABINE HYDROCHLORIDE
     Dosage: 1480 MG, WEEKLY (1/W)
     Route: 042
     Dates: start: 20140116
  5. GEMZAR [Suspect]
     Active Substance: GEMCITABINE HYDROCHLORIDE
     Indication: PANCREATIC CARCINOMA
     Dosage: 1700 MG, WEEKLY (1/W)
     Route: 042
     Dates: start: 20131210
  6. GEMZAR [Suspect]
     Active Substance: GEMCITABINE HYDROCHLORIDE
     Dosage: 1490 MG, WEEKLY (1/W)
     Route: 042
     Dates: start: 20140123

REACTIONS (7)
  - Pulmonary artery dilatation [Recovered/Resolved]
  - Hilar lymphadenopathy [Recovered/Resolved]
  - Cardiomegaly [Unknown]
  - Oedema peripheral [Recovered/Resolved]
  - Pulmonary arterial hypertension [Recovered/Resolved]
  - Acute interstitial pneumonitis [Recovered/Resolved]
  - Sepsis [Recovered/Resolved]

NARRATIVE: CASE EVENT DATE: 20140123
